FAERS Safety Report 26198325 (Version 1)
Quarter: 2025Q4

REPORT INFORMATION
  Report Type: Spontaneous
  Country: US (occurrence: None)
  Receive Date: 20251224
  Receipt Date: 20251224
  Transmission Date: 20260118
  Serious: Yes (Life-Threatening, Hospitalization)
  Sender: ALKERMES
  Company Number: US-ALKERMES INC.-ALK-2025-003369

PATIENT
  Age: 65 Year
  Sex: Male

DRUGS (3)
  1. VIVITROL [Suspect]
     Active Substance: NALTREXONE
     Indication: Alcohol use disorder
     Dosage: UNK
  2. METHADONE [Suspect]
     Active Substance: METHADONE HYDROCHLORIDE
     Indication: Product used for unknown indication
     Dosage: 270 MILLIGRAM, QD
     Route: 065
  3. DEXMEDETOMIDINE [Suspect]
     Active Substance: DEXMEDETOMIDINE
     Indication: Alcohol withdrawal syndrome
     Dosage: UNK
     Route: 065

REACTIONS (10)
  - Torsade de pointes [Unknown]
  - Respiratory failure [Unknown]
  - Dysphagia [Unknown]
  - Bradycardia [Unknown]
  - Pulmonary sepsis [Unknown]
  - Acute kidney injury [Unknown]
  - Secretion discharge [Unknown]
  - Alcohol withdrawal syndrome [Unknown]
  - Pneumonia [Unknown]
  - Contraindicated product administered [Unknown]
